FAERS Safety Report 5388457-3 (Version None)
Quarter: 2007Q3

REPORT INFORMATION
  Report Type: 
  Country: None (occurrence: None)
  Receive Date: 20070716
  Receipt Date: 20070705
  Transmission Date: 20080115
  Serious: Yes (Hospitalization, Other)
  Sender: FDA-Public Use
  Company Number: US-ELI_LILLY_AND_COMPANY-US200707003322

PATIENT
  Sex: Female

DRUGS (2)
  1. HUMALOG [Suspect]
     Dates: start: 19850101
  2. HUMULIN N [Suspect]
     Dates: start: 19850101

REACTIONS (8)
  - ARTHRITIS [None]
  - BLOOD GLUCOSE FLUCTUATION [None]
  - BREAST MASS [None]
  - COLON ADENOMA [None]
  - CORONARY ARTERY OCCLUSION [None]
  - FATIGUE [None]
  - GALLBLADDER OPERATION [None]
  - SPINAL COLUMN STENOSIS [None]
